FAERS Safety Report 8243480-6 (Version None)
Quarter: 2012Q1

REPORT INFORMATION
  Report Type: 
  Country: None (occurrence: None)
  Receive Date: 20120329
  Receipt Date: 20120316
  Transmission Date: 20120608
  Serious: Yes (Other)
  Sender: FDA-Public Use
  Company Number: CHPA2012FR005581

PATIENT
  Sex: Male

DRUGS (1)
  1. DICLOFENAC SODIUM [Suspect]
     Indication: LIGAMENT SPRAIN
     Dosage: UNK, UNK
     Route: 065
     Dates: start: 20120301, end: 20120313

REACTIONS (5)
  - DERMATITIS BULLOUS [None]
  - SKIN EXFOLIATION [None]
  - PENILE DISCHARGE [None]
  - DRUG ADMINISTERED AT INAPPROPRIATE SITE [None]
  - PENILE ERYTHEMA [None]
